FAERS Safety Report 8022896-7 (Version None)
Quarter: 2012Q1

REPORT INFORMATION
  Report Type: 
  Country: None (occurrence: None)
  Receive Date: 20120104
  Receipt Date: 20111227
  Transmission Date: 20120608
  Serious: Yes (Hospitalization)
  Sender: FDA-Public Use
  Company Number: PHHY2011DE94119

PATIENT
  Age: 57 Year
  Sex: Female
  Weight: 62 kg

DRUGS (2)
  1. CLINDAMYCIN [Suspect]
     Indication: TOOTH INFECTION
     Dosage: 1200 MG, UNK
     Dates: start: 20110801, end: 20110805
  2. GLEEVEC [Suspect]
     Indication: CHRONIC MYELOID LEUKAEMIA
     Dosage: 400 MG, DAILY
     Route: 048
     Dates: start: 20051101

REACTIONS (7)
  - CLOSTRIDIUM COLITIS [None]
  - CLOSTRIDIAL INFECTION [None]
  - CHILLS [None]
  - EYELID OEDEMA [None]
  - PYREXIA [None]
  - DIARRHOEA [None]
  - VOMITING [None]
